FAERS Safety Report 6474668-2 (Version None)
Quarter: 2009Q4

REPORT INFORMATION
  Report Type: 
  Country: None (occurrence: None)
  Receive Date: 20091204
  Receipt Date: 20091123
  Transmission Date: 20100525
  Serious: Yes (Other)
  Sender: FDA-Public Use
  Company Number: GB-PFIZER INC-2009301892

PATIENT

DRUGS (1)
  1. SULFASALAZINE [Suspect]

REACTIONS (1)
  - HAEMORRHAGE INTRACRANIAL [None]
